FAERS Safety Report 6254622-6 (Version None)
Quarter: 2009Q3

REPORT INFORMATION
  Report Type: 
  Country: None (occurrence: None)
  Receive Date: 20090702
  Receipt Date: 20090626
  Transmission Date: 20100115
  Serious: Yes (Hospitalization)
  Sender: FDA-Public Use
  Company Number: A0794985A

PATIENT
  Age: 26 Year
  Sex: Female
  Weight: 59.5 kg

DRUGS (3)
  1. FLOLAN [Suspect]
     Dosage: 9MGKM UNKNOWN
     Route: 042
  2. EPOPROSTENOL SODIUM [Suspect]
     Dosage: 9MGKM UNKNOWN
     Route: 042
     Dates: start: 20090514, end: 20090529
  3. REMODULIN [Concomitant]

REACTIONS (3)
  - BLISTER [None]
  - RASH [None]
  - SWELLING [None]
